FAERS Safety Report 12308124 (Version 3)
Quarter: 2016Q2

REPORT INFORMATION
  Report Type: Spontaneous
  Country: CN (occurrence: CN)
  Receive Date: 20160426
  Receipt Date: 20160524
  Transmission Date: 20160815
  Serious: Yes (Hospitalization, Other)
  Sender: FDA-Public Use
  Company Number: CN-ASTRAZENECA-2016SE43932

PATIENT
  Age: 36 Year
  Sex: Female

DRUGS (2)
  1. BRICANYL [Suspect]
     Active Substance: TERBUTALINE SULFATE
     Route: 055
     Dates: start: 20160418, end: 20160418
  2. PULMICORT RESPULES [Suspect]
     Active Substance: BUDESONIDE
     Indication: BRONCHITIS
     Route: 055
     Dates: start: 20160417, end: 20160418

REACTIONS (13)
  - Tic [Recovering/Resolving]
  - Asthenia [Unknown]
  - Blood potassium decreased [Unknown]
  - Drug hypersensitivity [Unknown]
  - Tremor [Recovered/Resolved]
  - Upper respiratory tract infection [Unknown]
  - Productive cough [Unknown]
  - Dizziness [Unknown]
  - Atrial fibrillation [Unknown]
  - Neutrophil count increased [Unknown]
  - Dyspnoea [Recovered/Resolved]
  - Chest discomfort [Recovered/Resolved]
  - Palpitations [Recovered/Resolved]

NARRATIVE: CASE EVENT DATE: 2016
